FAERS Safety Report 19371006 (Version 1)
Quarter: 2021Q2

REPORT INFORMATION
  Report Type: Report from Study
  Country: KR (occurrence: KR)
  Receive Date: 20210604
  Receipt Date: 20210604
  Transmission Date: 20210717
  Serious: Yes (Other)
  Sender: FDA-Public Use
  Company Number: KR-AMGEN-KORCT2021084197

PATIENT
  Sex: Female

DRUGS (45)
  1. DOCETAXEL. [Concomitant]
     Active Substance: DOCETAXEL
     Dosage: 75 UNK
     Dates: start: 20180203, end: 20180203
  2. PERTUZUMAB. [Concomitant]
     Active Substance: PERTUZUMAB
     Indication: PRODUCT USED FOR UNKNOWN INDICATION
     Dosage: 420 MILLIGRAM
     Dates: start: 20171104, end: 20171104
  3. PERTUZUMAB. [Concomitant]
     Active Substance: PERTUZUMAB
     Dosage: 420 MILLIGRAM
     Dates: start: 20171216, end: 20171216
  4. DIPHENYLPYRALINE [Concomitant]
     Active Substance: DIPHENYLPYRALINE
     Indication: PRODUCT USED FOR UNKNOWN INDICATION
     Dosage: 3 MILLIGRAM
     Dates: start: 20171012
  5. PRAMOCAINE [Concomitant]
     Active Substance: PRAMOXINE
     Indication: PRODUCT USED FOR UNKNOWN INDICATION
     Dosage: UNK
     Dates: start: 20171208
  6. RANITIDINE. [Concomitant]
     Active Substance: RANITIDINE
     Indication: PRODUCT USED FOR UNKNOWN INDICATION
     Dosage: 150 MILLIGRAM
     Dates: start: 20171013, end: 20171017
  7. FILGRASTIM [Suspect]
     Active Substance: FILGRASTIM
     Indication: PRODUCT USED FOR UNKNOWN INDICATION
     Dosage: 300 UNK
     Route: 065
     Dates: start: 20171025, end: 20171025
  8. DOCETAXEL. [Concomitant]
     Active Substance: DOCETAXEL
     Indication: PRODUCT USED FOR UNKNOWN INDICATION
     Dosage: 75 UNK
     Dates: start: 20171012, end: 20171012
  9. PERTUZUMAB. [Concomitant]
     Active Substance: PERTUZUMAB
     Dosage: 420 MILLIGRAM
     Dates: start: 20180203, end: 20180203
  10. TRASTUZUMAB. [Concomitant]
     Active Substance: TRASTUZUMAB
     Indication: PRODUCT USED FOR UNKNOWN INDICATION
     Dosage: UNK
     Dates: start: 20171012, end: 20171012
  11. DEXAMETHASONE. [Concomitant]
     Active Substance: DEXAMETHASONE
     Indication: PRODUCT USED FOR UNKNOWN INDICATION
     Dosage: 16 MILLIGRAM
     Dates: start: 20171013
  12. TRASTUZUMAB. [Concomitant]
     Active Substance: TRASTUZUMAB
     Dosage: UNK
     Dates: start: 20171104, end: 20171104
  13. TRASTUZUMAB. [Concomitant]
     Active Substance: TRASTUZUMAB
     Dosage: UNK
     Dates: start: 20180203, end: 20180203
  14. PALONOSETRON. [Concomitant]
     Active Substance: PALONOSETRON HYDROCHLORIDE
     Dosage: 0.25 UNK
     Dates: start: 20171104
  15. PEGFILGRASTIM [Concomitant]
     Active Substance: PEGFILGRASTIM
     Dosage: 6 MILLIGRAM
     Dates: start: 20171217, end: 20171217
  16. FILGRASTIM [Suspect]
     Active Substance: FILGRASTIM
     Dosage: 300 UNK
     Route: 065
     Dates: start: 20171208, end: 20171208
  17. PERTUZUMAB. [Concomitant]
     Active Substance: PERTUZUMAB
     Dosage: 420 MILLIGRAM
     Dates: start: 20171125, end: 20171125
  18. PERTUZUMAB. [Concomitant]
     Active Substance: PERTUZUMAB
     Dosage: 420 MILLIGRAM
     Dates: start: 20180106, end: 20180106
  19. TRASTUZUMAB. [Concomitant]
     Active Substance: TRASTUZUMAB
     Dosage: UNK
     Dates: start: 20171216, end: 20171216
  20. CARBOPLATIN. [Concomitant]
     Active Substance: CARBOPLATIN
     Dosage: 654 MILLIGRAM
     Dates: start: 20171125, end: 20171125
  21. CARBOPLATIN. [Concomitant]
     Active Substance: CARBOPLATIN
     Dosage: 742.5 MILLIGRAM
     Dates: start: 20180203, end: 20180203
  22. CARBOPLATIN. [Concomitant]
     Active Substance: CARBOPLATIN
     Dosage: 750 MILLIGRAM
     Dates: start: 20180106, end: 20180106
  23. IRON + VITAMIN B12 [Concomitant]
     Indication: PRODUCT USED FOR UNKNOWN INDICATION
     Dosage: 1 MILLIGRAM
     Dates: start: 20171012, end: 20171104
  24. DOCETAXEL. [Concomitant]
     Active Substance: DOCETAXEL
     Dosage: 75 UNK
     Dates: start: 20180106, end: 20180106
  25. CARBOPLATIN. [Concomitant]
     Active Substance: CARBOPLATIN
     Indication: PRODUCT USED FOR UNKNOWN INDICATION
     Dosage: 623 MILLIGRAM
     Dates: start: 20171216, end: 20171216
  26. DEXAMETHASONE. [Concomitant]
     Active Substance: DEXAMETHASONE
     Dosage: 10 MILLIGRAM
     Dates: start: 20171012
  27. METOCLOPRAMIDE. [Concomitant]
     Active Substance: METOCLOPRAMIDE
     Indication: PRODUCT USED FOR UNKNOWN INDICATION
     Dosage: 15 MILLIGRAM
     Dates: start: 20171013, end: 20171017
  28. DOCETAXEL. [Concomitant]
     Active Substance: DOCETAXEL
     Dosage: 75 UNK
     Dates: start: 20171104, end: 20171104
  29. CARBOPLATIN. [Concomitant]
     Active Substance: CARBOPLATIN
     Dosage: 666 MILLIGRAM
     Dates: start: 20171104, end: 20171104
  30. LEVOFLOXACIN. [Concomitant]
     Active Substance: LEVOFLOXACIN
     Indication: PRODUCT USED FOR UNKNOWN INDICATION
     Dosage: 750 MILLIGRAM
     Dates: start: 20171025, end: 20171031
  31. MAGNESIUM HYDROXIDE. [Concomitant]
     Active Substance: MAGNESIUM HYDROXIDE
     Indication: PRODUCT USED FOR UNKNOWN INDICATION
     Dosage: 1.5 UNK
     Dates: start: 20171126, end: 20171128
  32. PALONOSETRON. [Concomitant]
     Active Substance: PALONOSETRON HYDROCHLORIDE
     Indication: PRODUCT USED FOR UNKNOWN INDICATION
     Dosage: 0.25 MILLIGRAM
     Dates: start: 20171012
  33. PEGFILGRASTIM [Concomitant]
     Active Substance: PEGFILGRASTIM
     Indication: PRODUCT USED FOR UNKNOWN INDICATION
     Dosage: 6 MILLIGRAM
     Dates: start: 20171105, end: 20171105
  34. PERTUZUMAB. [Concomitant]
     Active Substance: PERTUZUMAB
     Dosage: 840 MILLIGRAM
     Dates: start: 20171012, end: 20171012
  35. DIOSMECTITE [Concomitant]
     Active Substance: MONTMORILLONITE
     Indication: PRODUCT USED FOR UNKNOWN INDICATION
     Dosage: 60 UNK
     Dates: start: 20171105, end: 20171111
  36. DIOSMECTITE [Concomitant]
     Active Substance: MONTMORILLONITE
     Dosage: 60 UNK
     Dates: start: 20171208, end: 20171214
  37. FOLIC ACID. [Concomitant]
     Active Substance: FOLIC ACID
     Indication: PRODUCT USED FOR UNKNOWN INDICATION
     Dosage: 1 MILLIGRAM
     Dates: start: 20171012, end: 20171013
  38. LOPERAMIDE [Concomitant]
     Active Substance: LOPERAMIDE
     Indication: PRODUCT USED FOR UNKNOWN INDICATION
     Dosage: 6 MILLIGRAM
     Dates: start: 20180107, end: 20180113
  39. PARACETAMOL [Concomitant]
     Active Substance: ACETAMINOPHEN
     Dosage: 650 MILLIGRAM
     Dates: start: 20171012
  40. DOCETAXEL. [Concomitant]
     Active Substance: DOCETAXEL
     Dosage: 75 UNK
     Dates: start: 20171125, end: 20171125
  41. DOCETAXEL. [Concomitant]
     Active Substance: DOCETAXEL
     Dosage: 75 UNK
     Dates: start: 20171216, end: 20171216
  42. TRASTUZUMAB. [Concomitant]
     Active Substance: TRASTUZUMAB
     Dosage: UNK
     Dates: start: 20171125, end: 20171125
  43. TRASTUZUMAB. [Concomitant]
     Active Substance: TRASTUZUMAB
     Dosage: UNK
     Dates: start: 20180106, end: 20180106
  44. CARBOPLATIN. [Concomitant]
     Active Substance: CARBOPLATIN
     Dosage: 630 MILLIGRAM
     Dates: start: 20171012, end: 20171012
  45. PARACETAMOL [Concomitant]
     Active Substance: ACETAMINOPHEN
     Indication: PRODUCT USED FOR UNKNOWN INDICATION
     Dosage: 1950 MILLIGRAM
     Dates: start: 20171013

REACTIONS (5)
  - Nausea [Recovered/Resolved]
  - Neutrophil count decreased [Recovered/Resolved]
  - Diarrhoea [Recovered/Resolved]
  - Anorectal disorder [Not Recovered/Not Resolved]
  - Neuropathy peripheral [Recovered/Resolved]

NARRATIVE: CASE EVENT DATE: 20171025
